FAERS Safety Report 7842288-0 (Version None)
Quarter: 2011Q4

REPORT INFORMATION
  Report Type: 
  Country: None (occurrence: None)
  Receive Date: 20111025
  Receipt Date: 20111018
  Transmission Date: 20120403
  Serious: Yes (Other)
  Sender: FDA-Public Use
  Company Number: FR-UCBSA-036379

PATIENT
  Sex: Female

DRUGS (2)
  1. CIMZIA [Suspect]
     Dosage: UNKNOW DOSE
     Route: 058
  2. METHOTREXATE [Concomitant]

REACTIONS (1)
  - CHEST DISCOMFORT [None]
